FAERS Safety Report 6306627-4 (Version None)
Quarter: 2009Q3

REPORT INFORMATION
  Report Type: 
  Country: None (occurrence: None)
  Receive Date: 20090812
  Receipt Date: 20090727
  Transmission Date: 20100115
  Serious: Yes (Hospitalization)
  Sender: FDA-Public Use
  Company Number: B0565899A

PATIENT
  Sex: Male

DRUGS (6)
  1. ZYLORIC [Suspect]
     Indication: GOUT
     Dosage: 100MG THREE TIMES PER DAY
     Route: 048
     Dates: start: 20090217, end: 20090226
  2. ARTIST [Suspect]
     Indication: HYPERTENSION
     Dosage: 5MG PER DAY
     Route: 048
     Dates: start: 19980101, end: 20090227
  3. DIGOXIN [Concomitant]
     Indication: HYPERTENSION
     Dosage: .125MG PER DAY
     Route: 048
     Dates: start: 19980101, end: 20090227
  4. BEZATOL SR [Concomitant]
     Indication: GOUT
     Dosage: 400MG PER DAY
     Route: 048
     Dates: start: 20090217, end: 20090226
  5. ASPIRIN [Concomitant]
     Route: 048
  6. VASOLAN [Concomitant]
     Indication: HYPERTENSION
     Dosage: 120MG PER DAY
     Route: 048
     Dates: start: 19980101, end: 20090227

REACTIONS (5)
  - DRUG ERUPTION [None]
  - DRUG RASH WITH EOSINOPHILIA AND SYSTEMIC SYMPTOMS [None]
  - EOSINOPHILIA [None]
  - GENERALISED ERYTHEMA [None]
  - PYREXIA [None]
